FAERS Safety Report 8455812-4 (Version None)
Quarter: 2012Q2

REPORT INFORMATION
  Report Type: 
  Country: None (occurrence: None)
  Receive Date: 20120613
  Receipt Date: 20120605
  Transmission Date: 20120825
  Serious: Yes (Hospitalization, Other)
  Sender: FDA-Public Use
  Company Number: 2012SP029255

PATIENT
  Age: 67 Year
  Sex: Female
  Weight: 60 kg

DRUGS (14)
  1. GASTROM [Concomitant]
  2. PEG-INTRON [Suspect]
     Indication: HEPATITIS C
     Dosage: 1.5 MCG/KG;QW;SC, 0.9 MCG/KG;QW;SC
     Route: 058
     Dates: start: 20120308, end: 20120501
  3. PEG-INTRON [Suspect]
     Indication: HEPATITIS C
     Dosage: 1.5 MCG/KG;QW;SC, 0.9 MCG/KG;QW;SC
     Route: 058
     Dates: start: 20120502
  4. PRAVASTATIN SODIUM [Concomitant]
  5. VOLTAREN [Concomitant]
  6. MAGMIT [Concomitant]
  7. TELAVIC (ANTIVIRALS NOS) [Suspect]
     Indication: HEPATITIS C
     Dosage: 2250 MG;QD;PO, 1500 MG;QD;PO, 1000 MG;QD;PO
     Route: 048
     Dates: start: 20120404, end: 20120424
  8. TELAVIC (ANTIVIRALS NOS) [Suspect]
     Indication: HEPATITIS C
     Dosage: 2250 MG;QD;PO, 1500 MG;QD;PO, 1000 MG;QD;PO
     Route: 048
     Dates: start: 20120308, end: 20120403
  9. TELAVIC (ANTIVIRALS NOS) [Suspect]
     Indication: HEPATITIS C
     Dosage: 2250 MG;QD;PO, 1500 MG;QD;PO, 1000 MG;QD;PO
     Route: 048
     Dates: start: 20120425, end: 20120509
  10. ALLOPURINOL [Concomitant]
  11. REBETOL [Suspect]
     Indication: HEPATITIS C
     Dosage: 800 MG;QD;PO, 600 MG;QD;PO, 400 MG;QD;PO, 200 MG;QD;PO
     Route: 048
     Dates: start: 20120308, end: 20120327
  12. REBETOL [Suspect]
     Indication: HEPATITIS C
     Dosage: 800 MG;QD;PO, 600 MG;QD;PO, 400 MG;QD;PO, 200 MG;QD;PO
     Route: 048
     Dates: start: 20120328, end: 20120403
  13. REBETOL [Suspect]
     Indication: HEPATITIS C
     Dosage: 800 MG;QD;PO, 600 MG;QD;PO, 400 MG;QD;PO, 200 MG;QD;PO
     Route: 048
     Dates: start: 20120404, end: 20120410
  14. REBETOL [Suspect]
     Indication: HEPATITIS C
     Dosage: 800 MG;QD;PO, 600 MG;QD;PO, 400 MG;QD;PO, 200 MG;QD;PO
     Route: 048
     Dates: start: 20120411, end: 20120509

REACTIONS (7)
  - BLOOD CREATININE INCREASED [None]
  - BLOOD URIC ACID INCREASED [None]
  - LOSS OF CONSCIOUSNESS [None]
  - BLOOD UREA INCREASED [None]
  - ANAEMIA [None]
  - DECREASED APPETITE [None]
  - PYREXIA [None]
